FAERS Safety Report 8369801-1 (Version None)
Quarter: 2012Q2

REPORT INFORMATION
  Report Type: 
  Country: None (occurrence: None)
  Receive Date: 20120518
  Receipt Date: 20120509
  Transmission Date: 20120825
  Serious: Yes (Other)
  Sender: FDA-Public Use
  Company Number: MX-SANOFI-AVENTIS-2012SA034918

PATIENT

DRUGS (2)
  1. FUROSEMIDE [Suspect]
     Route: 065
  2. DIGOXIN [Interacting]
     Route: 065

REACTIONS (4)
  - ARRHYTHMIA [None]
  - VOMITING [None]
  - NAUSEA [None]
  - DRUG INTERACTION [None]
